FAERS Safety Report 19516890 (Version 3)
Quarter: 2022Q1

REPORT INFORMATION
  Report Type: Spontaneous
  Country: US (occurrence: US)
  Receive Date: 20210711
  Receipt Date: 20220221
  Transmission Date: 20220423
  Serious: Yes (Other)
  Sender: FDA-Public Use
  Company Number: US-GILEAD-2021-0539492

PATIENT
  Sex: Male
  Weight: 83.914 kg

DRUGS (26)
  1. ATRIPLA [Suspect]
     Active Substance: EFAVIRENZ\EMTRICITABINE\TENOFOVIR DISOPROXIL FUMARATE
     Indication: HIV infection
     Dosage: UNK
     Route: 048
     Dates: start: 2008
  2. ATRIPLA [Suspect]
     Active Substance: EFAVIRENZ\EMTRICITABINE\TENOFOVIR DISOPROXIL FUMARATE
     Dosage: UNK
     Route: 048
     Dates: start: 2006, end: 201908
  3. TRUVADA [Suspect]
     Active Substance: EMTRICITABINE\TENOFOVIR DISOPROXIL FUMARATE
     Indication: HIV infection
     Dosage: UNK
     Route: 048
     Dates: start: 2008
  4. TRUVADA [Suspect]
     Active Substance: EMTRICITABINE\TENOFOVIR DISOPROXIL FUMARATE
     Dosage: UNK
     Route: 048
     Dates: start: 2004, end: 2006
  5. BIKTARVY [Concomitant]
     Active Substance: BICTEGRAVIR SODIUM\EMTRICITABINE\TENOFOVIR ALAFENAMIDE FUMARATE
  6. CRIXIVAN [Concomitant]
     Active Substance: INDINAVIR SULFATE
  7. EPIVIR [Concomitant]
     Active Substance: LAMIVUDINE
  8. SUSTIVA [Concomitant]
     Active Substance: EFAVIRENZ
  9. ZERIT [Concomitant]
     Active Substance: STAVUDINE
  10. AFLURIA NOS [Concomitant]
     Active Substance: INFLUENZA VIRUS VACCINE TRIVALENT TYPE A+B AFLURIA
  11. ALBUTEROL [Concomitant]
     Active Substance: ALBUTEROL
  12. AVELOX [Concomitant]
     Active Substance: MOXIFLOXACIN HYDROCHLORIDE
  13. INSULIN NOS [Concomitant]
     Active Substance: INSULIN NOS
  14. CHANTIX [Concomitant]
     Active Substance: VARENICLINE TARTRATE
  15. CLARINEX [Concomitant]
     Active Substance: DESLORATADINE
  16. DIAZEPAM [Concomitant]
     Active Substance: DIAZEPAM
  17. FLUARIX NOS [Concomitant]
     Active Substance: INFLUENZA VIRUS VACCINE
  18. FLUVIRINE [Concomitant]
  19. OXYCODONE [Concomitant]
     Active Substance: OXYCODONE
  20. OXYCONTIN [Concomitant]
     Active Substance: OXYCODONE HYDROCHLORIDE
  21. PREDNISONE [Concomitant]
     Active Substance: PREDNISONE
  22. SUPREP BOWEL PREP [Concomitant]
     Active Substance: MAGNESIUM SULFATE\POTASSIUM SULFATE\SODIUM SULFATE
  23. TESTOSTERONE [Concomitant]
     Active Substance: TESTOSTERONE
  24. TESTOSTERONE CYPIONATE [Concomitant]
     Active Substance: TESTOSTERONE CYPIONATE
  25. TIZANIDINE [Concomitant]
     Active Substance: TIZANIDINE
  26. VALIUM [Concomitant]
     Active Substance: DIAZEPAM

REACTIONS (11)
  - Multiple fractures [Not Recovered/Not Resolved]
  - Tibia fracture [Unknown]
  - Bone density decreased [Not Recovered/Not Resolved]
  - Pain [Not Recovered/Not Resolved]
  - Emotional distress [Not Recovered/Not Resolved]
  - Anxiety [Not Recovered/Not Resolved]
  - Anhedonia [Not Recovered/Not Resolved]
  - Stress [Not Recovered/Not Resolved]
  - Decreased interest [Not Recovered/Not Resolved]
  - Depressed mood [Not Recovered/Not Resolved]
  - Decreased activity [Unknown]

NARRATIVE: CASE EVENT DATE: 20050101
